FAERS Safety Report 7653594 (Version 7)
Quarter: 2015Q4

REPORT INFORMATION
  Report Type: Spontaneous
  Country: US (occurrence: US)
  Receive Date: 20101102
  Receipt Date: 20151009
  Transmission Date: 20160305
  Serious: Yes (Hospitalization)
  Sender: FDA-Public Use
  Company Number: US-BAYER-201039047NA

PATIENT
  Age: 35 Year
  Sex: Female
  Weight: 108.84 kg

DRUGS (4)
  1. BENICAR [Concomitant]
     Active Substance: OLMESARTAN MEDOXOMIL
     Indication: HYPERTENSION
     Dosage: 4025 MG, QD
     Route: 048
  2. NAPROXEN SODIUM W/PSEUDOEPHEDRINE HCL [Concomitant]
     Dosage: 500 MG, QD
     Dates: start: 200709, end: 200804
  3. YAZ [Suspect]
     Active Substance: DROSPIRENONE\ETHINYL ESTRADIOL
     Indication: CONTRACEPTION
     Dosage: UNK
     Route: 048
     Dates: start: 200710, end: 200806
  4. POTASSIUM CHLORIDE. [Concomitant]
     Active Substance: POTASSIUM CHLORIDE

REACTIONS (8)
  - Pain [None]
  - Anxiety [None]
  - Deep vein thrombosis [None]
  - Anhedonia [None]
  - Injury [None]
  - General physical health deterioration [None]
  - Emotional distress [None]
  - Thrombophlebitis superficial [Unknown]

NARRATIVE: CASE EVENT DATE: 20080523
